FAERS Safety Report 18017936 (Version 1)
Quarter: 2020Q3

REPORT INFORMATION
  Report Type: Other
  Country: FR (occurrence: FR)
  Receive Date: 20200714
  Receipt Date: 20200714
  Transmission Date: 20201103
  Serious: Yes (Hospitalization)
  Sender: FDA-Public Use
  Company Number: FR-CADILA HEALTHCARE LIMITED-FR-ZYDUS-049419

PATIENT

DRUGS (4)
  1. PREDNISONE. [Suspect]
     Active Substance: PREDNISONE
     Indication: FASCIITIS
     Route: 048
     Dates: start: 20181224
  2. AMIODARONE [Suspect]
     Active Substance: AMIODARONE
     Indication: ATRIAL FIBRILLATION
     Dosage: 200 MILLIGRAM
     Route: 048
     Dates: start: 20200115
  3. ELIQUIS [Suspect]
     Active Substance: APIXABAN
     Indication: ATRIAL FIBRILLATION
     Dosage: 1 DOSAGE FORM
     Route: 048
     Dates: start: 20190115
  4. RAPAMUNE [Interacting]
     Active Substance: SIROLIMUS
     Indication: FASCIITIS
     Route: 048
     Dates: start: 20191226

REACTIONS (4)
  - Dyslipidaemia [Not Recovered/Not Resolved]
  - Epistaxis [Recovering/Resolving]
  - Hypertension [Recovering/Resolving]
  - Diabetes mellitus [Recovering/Resolving]

NARRATIVE: CASE EVENT DATE: 202001
